FAERS Safety Report 12409174 (Version 1)
Quarter: 2016Q2

REPORT INFORMATION
  Report Type: Spontaneous
  Country: GB (occurrence: GB)
  Receive Date: 20160526
  Receipt Date: 20160526
  Transmission Date: 20160815
  Serious: Yes (Other)
  Sender: FDA-Public Use
  Company Number: GB-ACTAVIS-2016-10595

PATIENT
  Age: 75 Year
  Sex: Female

DRUGS (2)
  1. ISOSORBIDE MONONITRATE (UNKNOWN) [Suspect]
     Active Substance: ISOSORBIDE MONONITRATE
     Dosage: 50 MG, UNK;  MODIFIED RELEASE 50 MG TABLET
     Route: 065
     Dates: start: 20151116
  2. ISOSORBIDE MONONITRATE (UNKNOWN) [Suspect]
     Active Substance: ISOSORBIDE MONONITRATE
     Indication: PRODUCT USED FOR UNKNOWN INDICATION
     Dosage: UNK; CAPSULES
     Route: 065

REACTIONS (4)
  - Rectal haemorrhage [Unknown]
  - Malaise [Unknown]
  - Diarrhoea [Unknown]
  - Incorrect product formulation administered [Unknown]

NARRATIVE: CASE EVENT DATE: 20151116
